FAERS Safety Report 6833999-4 (Version None)
Quarter: 2010Q3

REPORT INFORMATION
  Report Type: 
  Country: None (occurrence: None)
  Receive Date: 20100712
  Receipt Date: 20100524
  Transmission Date: 20110219
  Serious: Yes (Hospitalization)
  Sender: FDA-Public Use
  Company Number: ES-GENENTECH-301778

PATIENT
  Age: 86 Year
  Sex: Male

DRUGS (5)
  1. RITUXIMAB [Suspect]
     Indication: IDIOPATHIC THROMBOCYTOPENIC PURPURA
     Dosage: 750 MG, UNK
     Route: 042
     Dates: start: 20090101, end: 20090227
  2. IMMUNE GLOBULIN INTRAVENOUS (HUMAN) [Concomitant]
     Indication: PRODUCT USED FOR UNKNOWN INDICATION
     Dosage: UNK
     Route: 042
  3. IMMUNE GLOBULIN INTRAVENOUS (HUMAN) [Concomitant]
     Dosage: 1 G/KG, QD
     Route: 042
  4. IMMUNE GLOBULIN INTRAVENOUS (HUMAN) [Concomitant]
     Dosage: 0.4 G/KG, QD
     Route: 042
  5. IMMUNE GLOBULIN INTRAVENOUS (HUMAN) [Concomitant]
     Dosage: UNK
     Route: 042

REACTIONS (1)
  - GUILLAIN-BARRE SYNDROME [None]
